FAERS Safety Report 12503054 (Version 1)
Quarter: 2016Q2

REPORT INFORMATION
  Report Type: Spontaneous
  Country: US (occurrence: None)
  Receive Date: 20160627
  Receipt Date: 20160627
  Transmission Date: 20160815
  Serious: No
  Sender: FDA-Public Use
  Company Number: None

PATIENT
  Age: 63 Year
  Sex: Male
  Weight: 124.74 kg

DRUGS (14)
  1. NEURONTIN [Concomitant]
     Active Substance: GABAPENTIN
  2. TOPROL XL [Concomitant]
     Active Substance: METOPROLOL SUCCINATE
  3. APAP [Concomitant]
     Active Substance: ACETAMINOPHEN
  4. CINNAMON. [Concomitant]
     Active Substance: CINNAMON
  5. ESZETIMIBE (ZETIA) [Concomitant]
  6. MONTELUKAST (SINGULAR) [Concomitant]
  7. NEXIUM [Concomitant]
     Active Substance: ESOMEPRAZOLE MAGNESIUM
  8. BYDUREON [Suspect]
     Active Substance: EXENATIDE
     Indication: TYPE 2 DIABETES MELLITUS
     Dosage: 4 INJECTION(S) ONCE WEEKLY INJECTED IN ABDOMAN AREA
     Dates: start: 20160424
  9. SYNJARDY (EMPAGLIFLOZIN + METFORMIN) [Concomitant]
  10. TYLENOL ARTHRITIS PAIN [Concomitant]
     Active Substance: ACETAMINOPHEN
  11. B-100 COMPLEX [Concomitant]
     Active Substance: DEXPANTHENOL\NIACINAMIDE\PYRIDOXINE HYDROCHLORIDE\RIBOFLAVIN 5^-PHOSPHATE SODIUM\THIAMINE HYDROCHLORIDE
  12. CENTRUM SILVER [Concomitant]
     Active Substance: MINERALS\VITAMINS
  13. ALBUTEROL (VENTOLIN) HFA [Concomitant]
  14. FLAXSEED [Concomitant]
     Active Substance: FLAX SEED

REACTIONS (5)
  - Needle issue [None]
  - Injection site haemorrhage [None]
  - Injection site nodule [None]
  - Product use issue [None]
  - Injection site pain [None]

NARRATIVE: CASE EVENT DATE: 20160619
